FAERS Safety Report 23128924 (Version 1)
Quarter: 2023Q4

REPORT INFORMATION
  Report Type: Spontaneous
  Country: US (occurrence: US)
  Receive Date: 20231031
  Receipt Date: 20231031
  Transmission Date: 20240110
  Serious: Yes (Other)
  Sender: FDA-Public Use
  Company Number: US-MYLANLABS-2023M1114552

PATIENT
  Sex: Male

DRUGS (2)
  1. TRIAMCINOLONE [Suspect]
     Active Substance: TRIAMCINOLONE
     Indication: Immune recovery uveitis
     Dosage: 0.5 MILLILITER, SINGLE SUB-TENON TRIAMCINOLONE INJECTIONS (0.5ML [40 MG/1 ML]) WERE GIVEN?..
     Route: 065
  2. METHYLPREDNISOLONE [Concomitant]
     Active Substance: METHYLPREDNISOLONE
     Indication: Cytomegalovirus chorioretinitis
     Dosage: 1 MILLIGRAM/KILOGRAM, STARTED ON DAY +168 AND WEANED OFF ON DAY +205
     Route: 065

REACTIONS (1)
  - Drug ineffective [Unknown]
